FAERS Safety Report 9311084 (Version 1)
Quarter: 2013Q2

REPORT INFORMATION
  Report Type: Spontaneous
  Country: US (occurrence: US)
  Receive Date: 20130528
  Receipt Date: 20130528
  Transmission Date: 20140414
  Serious: No
  Sender: FDA-Public Use
  Company Number: US-PFIZER INC-2013160363

PATIENT
  Age: 42 Year
  Sex: Female
  Weight: 77.1 kg

DRUGS (1)
  1. ALAVERT [Suspect]
     Indication: HYPERSENSITIVITY
     Dosage: 10 MG, TWO TIMES A MONTH
     Dates: start: 2012

REACTIONS (1)
  - Drug ineffective [Unknown]
